FAERS Safety Report 6756834-1 (Version None)
Quarter: 2010Q2

REPORT INFORMATION
  Report Type: 
  Country: None (occurrence: None)
  Receive Date: 20100604
  Receipt Date: 20100603
  Transmission Date: 20101027
  Serious: Yes (Life-Threatening, Hospitalization, Other)
  Sender: FDA-Public Use
  Company Number: PHHY2010TW12538

PATIENT
  Sex: Female

DRUGS (2)
  1. ACLASTA [Suspect]
     Indication: OSTEOPOROSIS
     Dosage: 5 MG PER YEAR
     Route: 042
     Dates: start: 20100303
  2. MAXOLON [Concomitant]
     Indication: MUSCLE RELAXANT THERAPY
     Dosage: UNK
     Route: 048
     Dates: start: 20100303

REACTIONS (13)
  - CARDIAC DISORDER [None]
  - CHEST PAIN [None]
  - COMA [None]
  - CONTUSION [None]
  - DIZZINESS [None]
  - DYSPNOEA [None]
  - EXTRASYSTOLES [None]
  - HYPERHIDROSIS [None]
  - HYPOTENSION [None]
  - PALPITATIONS [None]
  - PYREXIA [None]
  - ROAD TRAFFIC ACCIDENT [None]
  - SYNCOPE [None]
